FAERS Safety Report 5197952-1 (Version None)
Quarter: 2007Q1

REPORT INFORMATION
  Report Type: 
  Country: None (occurrence: None)
  Receive Date: 20070104
  Receipt Date: 20061227
  Transmission Date: 20070707
  Serious: Yes (Hospitalization)
  Sender: FDA-Public Use
  Company Number: CA-JNJFOC-20061206777

PATIENT
  Sex: Female
  Weight: 77.5 kg

DRUGS (15)
  1. REMICADE [Suspect]
     Route: 042
  2. REMICADE [Suspect]
     Indication: ANKYLOSING SPONDYLITIS
     Route: 042
  3. RIVA PAROXETINE [Concomitant]
  4. CELEBREX [Concomitant]
  5. HUMALOG [Concomitant]
     Dosage: 100 UNITS/ML
     Route: 058
  6. HUMULIN 70/30 [Concomitant]
     Dosage: 100 UNITS/ML
     Route: 058
  7. HUMULIN N [Concomitant]
     Dosage: 100 UNITS/ML
  8. ACIDE FOLIQUE [Concomitant]
  9. APO-METHOTREXATE [Concomitant]
  10. ACCURETIC [Concomitant]
     Dosage: 12.5 MG-20 MG
  11. OMEPRAZOLE [Concomitant]
  12. RATIO SALBUTAMOL [Concomitant]
     Dosage: 100MCG/DOSE
     Route: 048
  13. CRESTOR [Concomitant]
  14. FLOVENT HFA [Concomitant]
     Dosage: 125 MCG/DOSE
  15. TEMAZEPAM [Concomitant]

REACTIONS (3)
  - LUPUS-LIKE SYNDROME [None]
  - PLEURAL EFFUSION [None]
  - POLYARTHRITIS [None]
